FAERS Safety Report 13652561 (Version 1)
Quarter: 2017Q2

REPORT INFORMATION
  Report Type: Spontaneous
  Country: US (occurrence: US)
  Receive Date: 20170614
  Receipt Date: 20170614
  Transmission Date: 20170830
  Serious: No
  Sender: FDA-Public Use
  Company Number: US-ROCHE-1338757

PATIENT
  Sex: Male

DRUGS (1)
  1. XELODA [Suspect]
     Active Substance: CAPECITABINE
     Indication: OESOPHAGEAL CANCER METASTATIC
     Dosage: 3 TABS IN THE MORNING AND 3 TABS IN THE EVENING FOR 1 WEEK ON AND 1 WEEK OFF BEFORE AND NOW 5 TABS A
     Route: 048

REACTIONS (1)
  - Dysphagia [Unknown]
